FAERS Safety Report 5937447-8 (Version None)
Quarter: 2008Q4

REPORT INFORMATION
  Report Type: 
  Country: None (occurrence: None)
  Receive Date: 20081031
  Receipt Date: 20081028
  Transmission Date: 20090506
  Serious: Yes (Other)
  Sender: FDA-Public Use
  Company Number: A0754327A

PATIENT
  Age: 66 Year
  Sex: Female

DRUGS (3)
  1. PAXIL [Suspect]
     Indication: DRUG USE FOR UNKNOWN INDICATION
     Dosage: 20MGD PER DAY
     Route: 048
  2. TRAZODONE HCL [Suspect]
     Indication: DRUG USE FOR UNKNOWN INDICATION
     Route: 048
  3. WELLBUTRIN [Concomitant]
     Route: 048

REACTIONS (10)
  - ADVERSE DRUG REACTION [None]
  - ANXIETY [None]
  - CRYING [None]
  - DEPRESSION [None]
  - DRUG INEFFECTIVE [None]
  - MIDDLE INSOMNIA [None]
  - PARAESTHESIA [None]
  - SLEEP DISORDER [None]
  - SUICIDAL IDEATION [None]
  - VERTIGO [None]
